FAERS Safety Report 13693001 (Version 1)
Quarter: 2017Q2

REPORT INFORMATION
  Report Type: Report from Study
  Country: None (occurrence: US)
  Receive Date: 20170627
  Receipt Date: 20170627
  Transmission Date: 20170830
  Serious: Yes (Other)
  Sender: FDA-Public Use
  Company Number: US-ABBVIE-17K-163-1863290-00

PATIENT
  Age: 77 Year
  Sex: Male

DRUGS (1)
  1. HUMIRA [Suspect]
     Active Substance: ADALIMUMAB
     Indication: PSORIATIC ARTHROPATHY
     Route: 058

REACTIONS (6)
  - Cholecystectomy [Unknown]
  - Parkinson^s disease [Recovering/Resolving]
  - Coronary arterial stent insertion [Unknown]
  - Hepatic mass [Not Recovered/Not Resolved]
  - Diabetes mellitus [Recovering/Resolving]
  - Onychomycosis [Unknown]

NARRATIVE: CASE EVENT DATE: 201703
